FAERS Safety Report 5532073-7 (Version None)
Quarter: 2007Q4

REPORT INFORMATION
  Report Type: 
  Country: None (occurrence: None)
  Receive Date: 20071203
  Receipt Date: 20071128
  Transmission Date: 20080405
  Serious: Yes (Hospitalization)
  Sender: FDA-Public Use
  Company Number: B0497462A

PATIENT
  Age: 84 Year
  Sex: Female

DRUGS (7)
  1. RANITIDINE HCL [Suspect]
     Dosage: 300MG PER DAY
     Dates: end: 20070704
  2. DI-ANTALVIC [Suspect]
     Route: 048
     Dates: end: 20070704
  3. AMARYL [Suspect]
     Dosage: 4MG PER DAY
     Route: 048
     Dates: end: 20070712
  4. FENOFIBRATE [Suspect]
     Dosage: 160MG PER DAY
     Route: 048
     Dates: end: 20070704
  5. ACARBOSE [Concomitant]
     Dosage: 50MG THREE TIMES PER DAY
     Route: 048
  6. ARICEPT [Concomitant]
     Dosage: 10MG PER DAY
     Route: 048
     Dates: end: 20070712
  7. COTAREG [Concomitant]

REACTIONS (4)
  - ABDOMINAL PAIN UPPER [None]
  - DISORIENTATION [None]
  - DISTURBANCE IN ATTENTION [None]
  - HYPOGLYCAEMIC COMA [None]
